FAERS Safety Report 11072919 (Version 1)
Quarter: 2015Q2

REPORT INFORMATION
  Report Type: Spontaneous
  Country: IT (occurrence: IT)
  Receive Date: 20150428
  Receipt Date: 20150428
  Transmission Date: 20150821
  Serious: Yes (Death, Other)
  Sender: FDA-Public Use
  Company Number: IT-CIPLA LTD.-2015IT03376

PATIENT

DRUGS (9)
  1. CARBOPLATIN. [Suspect]
     Active Substance: CARBOPLATIN
     Indication: EWING^S SARCOMA
     Dosage: THREE COURSES
  2. IRINOTECAN [Suspect]
     Active Substance: IRINOTECAN
     Indication: EWING^S SARCOMA
     Dosage: 75 MG/SQM AT DAY 2
  3. IRINOTECAN [Suspect]
     Active Substance: IRINOTECAN
     Dosage: 75 MG/SQM AT DAY 2 AND DAY 4, VERY 3 WEEKS FOR 11 COURSE
  4. IFOSFAMIDE. [Suspect]
     Active Substance: IFOSFAMIDE
     Indication: EWING^S SARCOMA
     Dosage: THREE COURSES
  5. DEXAMETHASONE. [Concomitant]
     Active Substance: DEXAMETHASONE
     Dosage: 20 MG/M2, 30 MIN BEFORE TRABECTEDIN INFUSION
  6. DOCETAXEL. [Suspect]
     Active Substance: DOCETAXEL
     Indication: EWING^S SARCOMA
     Dosage: THREE COURSES
  7. ETOPOSIDE. [Suspect]
     Active Substance: ETOPOSIDE
     Indication: EWING^S SARCOMA
     Dosage: THREE COURSES
  8. TRABECTEDIN [Suspect]
     Active Substance: TRABECTEDIN
     Indication: EWING^S SARCOMA
     Dosage: 1 MG/SQM  AT DAY 1, 24 HOURS INFUSION, 11 COURSES
  9. GEMCITABINE [Suspect]
     Active Substance: GEMCITABINE\GEMCITABINE HYDROCHLORIDE
     Indication: EWING^S SARCOMA
     Dosage: THREE COURSES

REACTIONS (8)
  - Cerebrovascular accident [Fatal]
  - Disease recurrence [Unknown]
  - Diarrhoea [Unknown]
  - Drug ineffective [Unknown]
  - Transaminases increased [Unknown]
  - Disease progression [Unknown]
  - Hepatotoxicity [Unknown]
  - Haematotoxicity [Unknown]
